FAERS Safety Report 5021985-9 (Version None)
Quarter: 2006Q2

REPORT INFORMATION
  Report Type: 
  Country: None (occurrence: None)
  Receive Date: 20060501
  Receipt Date: 20060327
  Transmission Date: 20061013
  Serious: Yes (Other)
  Sender: FDA-Public Use
  Company Number: 200610630US

PATIENT
  Sex: Male

DRUGS (1)
  1. KETEK [Suspect]
     Dosage: 800 MG QD PO
     Route: 048
     Dates: start: 20041214

REACTIONS (1)
  - VISION BLURRED [None]
